FAERS Safety Report 11324151 (Version 2)
Quarter: 2015Q3

REPORT INFORMATION
  Report Type: Spontaneous
  Country: JP (occurrence: JP)
  Receive Date: 20150730
  Receipt Date: 20150810
  Transmission Date: 20151125
  Serious: Yes (Other)
  Sender: FDA-Public Use
  Company Number: JP-PFIZER INC-2015253768

PATIENT
  Age: 70 Year
  Sex: Female

DRUGS (1)
  1. CELECOX [Suspect]
     Active Substance: CELECOXIB
     Dosage: 100MG
     Route: 065
     Dates: start: 201402, end: 201407

REACTIONS (1)
  - Interstitial lung disease [Unknown]
